FAERS Safety Report 7502504-1 (Version None)
Quarter: 2011Q2

REPORT INFORMATION
  Report Type: 
  Country: None (occurrence: None)
  Receive Date: 20110525
  Receipt Date: 20110513
  Transmission Date: 20111010
  Serious: Yes (Other)
  Sender: FDA-Public Use
  Company Number: US-JNJFOC-20110310754

PATIENT
  Sex: Female
  Weight: 74.84 kg

DRUGS (3)
  1. HALDOL [Suspect]
     Indication: SCHIZOPHRENIA
     Dosage: PRIOR TO 2006
     Route: 065
  2. HALDOL [Suspect]
     Indication: PSYCHOTIC DISORDER
     Dosage: PRIOR TO 2006
     Route: 065
  3. UNKNOWN MEDICATION [Concomitant]
     Route: 065

REACTIONS (2)
  - DYSPLASIA [None]
  - DRUG INEFFECTIVE [None]
